FAERS Safety Report 23692157 (Version 1)
Quarter: 2024Q2

REPORT INFORMATION
  Report Type: Spontaneous
  Country: US (occurrence: US)
  Receive Date: 20240401
  Receipt Date: 20240401
  Transmission Date: 20240716
  Serious: Yes (Other)
  Sender: FDA-Public Use
  Company Number: US-FreseniusKabi-FK202405310

PATIENT
  Age: 16 Year
  Sex: Female

DRUGS (20)
  1. LINEZOLID [Suspect]
     Active Substance: LINEZOLID
     Indication: Pulmonary tuberculosis
     Dosage: ROUTE OF ADMIN: INTRAVENOUS
  2. LINEZOLID [Suspect]
     Active Substance: LINEZOLID
     Indication: Meningitis tuberculous
  3. LEVOFLOXACIN [Suspect]
     Active Substance: LEVOFLOXACIN
     Indication: Pulmonary tuberculosis
     Dosage: ROUTE OF ADMIN: INTRAVENOUS
  4. LEVOFLOXACIN [Suspect]
     Active Substance: LEVOFLOXACIN
     Indication: Meningitis tuberculous
  5. RIFAMPIN [Suspect]
     Active Substance: RIFAMPIN
     Indication: Pulmonary tuberculosis
     Dosage: ROUTE OF ADMIN: INTRAVENOUS
  6. RIFAMPIN [Suspect]
     Active Substance: RIFAMPIN
     Indication: Meningitis tuberculous
  7. DEXAMETHASONE [Suspect]
     Active Substance: DEXAMETHASONE
     Indication: Pulmonary tuberculosis
     Dosage: DEXAMETHASONE WAS INCREASED TO 0.2 MG/KG/DAY
  8. DEXAMETHASONE [Suspect]
     Active Substance: DEXAMETHASONE
     Indication: Meningitis tuberculous
     Dosage: DEXAMETHASONE 10  MG  (0.13 MG/KG/DAY; EQUIVALENT TO PREDNISONE APPROXIMATELY 60 MG/DAY). IT WAS REC
  9. ISONIAZID [Suspect]
     Active Substance: ISONIAZID
     Indication: Pulmonary tuberculosis
     Dosage: THREE-DRUG THERAPY WITH?ISONIAZID 300 MG PO DAILY?HE PATIENT WAS STARTED ON DAILY ISONIAZID 300 MG
  10. ISONIAZID [Suspect]
     Active Substance: ISONIAZID
     Indication: Meningitis tuberculous
  11. PYRAZINAMIDE [Suspect]
     Active Substance: PYRAZINAMIDE
     Indication: Pulmonary tuberculosis
     Dosage: VIA NASOGASTRIC TUBE
  12. PYRAZINAMIDE [Suspect]
     Active Substance: PYRAZINAMIDE
     Indication: Meningitis tuberculous
  13. RIFAMPIN [Suspect]
     Active Substance: RIFAMPIN
     Indication: Pulmonary tuberculosis
     Dosage: THE PATIENT WAS STARTED ON DAILY RIFAMPIN 600 MG
  14. RIFAMPIN [Suspect]
     Active Substance: RIFAMPIN
     Indication: Meningitis tuberculous
  15. AMIKACIN [Concomitant]
     Active Substance: AMIKACIN
     Indication: Pulmonary tuberculosis
  16. AMIKACIN [Concomitant]
     Active Substance: AMIKACIN
     Indication: Meningitis tuberculous
  17. ASPIRIN [Concomitant]
     Active Substance: ASPIRIN
     Indication: Product used for unknown indication
  18. ANAKINRA [Concomitant]
     Active Substance: ANAKINRA
     Indication: Product used for unknown indication
  19. ETOPOSIDE [Concomitant]
     Active Substance: ETOPOSIDE
     Indication: Product used for unknown indication
  20. HUMAN IMMUNOGLOBULIN G [Concomitant]
     Active Substance: HUMAN IMMUNOGLOBULIN G
     Indication: Product used for unknown indication
     Dosage: ROA: INTRAVENOUS?REPEAT IVIG

REACTIONS (3)
  - Pancytopenia [Recovered/Resolved]
  - Meningitis tuberculous [Recovered/Resolved]
  - Condition aggravated [Recovered/Resolved]
